FAERS Safety Report 9585855 (Version 2)
Quarter: 2013Q4

REPORT INFORMATION
  Report Type: Spontaneous
  Country: US (occurrence: None)
  Receive Date: 20131001
  Receipt Date: 20131018
  Transmission Date: 20140711
  Serious: Yes (Hospitalization)
  Sender: FDA-Public Use
  Company Number: 151518

PATIENT
  Age: 65 Year
  Sex: Male
  Weight: 65 kg

DRUGS (1)
  1. LEUCOVORIN CALCIUM FOR INJ. 50MG - BEDFORD LABS, INC. [Suspect]
     Indication: COLORECTAL CANCER METASTATIC
     Dates: start: 20130307, end: 20130529

REACTIONS (13)
  - Anal inflammation [None]
  - Frequent bowel movements [None]
  - Cystitis [None]
  - Anaemia [None]
  - Escherichia test positive [None]
  - Metastases to bone [None]
  - Spinal column stenosis [None]
  - Diarrhoea [None]
  - Stomatitis [None]
  - Pyrexia [None]
  - Pollakiuria [None]
  - Platelet count decreased [None]
  - Haematuria [None]
